FAERS Safety Report 13929736 (Version 1)
Quarter: 2017Q3

REPORT INFORMATION
  Report Type: Spontaneous
  Country: US (occurrence: US)
  Receive Date: 20170901
  Receipt Date: 20170901
  Transmission Date: 20171127
  Serious: Yes (Hospitalization, Other)
  Sender: FDA-Public Use
  Company Number: US-SAOL THERAPEUTICS-2017SAO01381

PATIENT
  Age: 74 Year
  Sex: Female

DRUGS (6)
  1. BACLOFEN. [Suspect]
     Active Substance: BACLOFEN
     Dosage: UNK
     Route: 037
     Dates: start: 20170822, end: 20170824
  2. BUPIVACAINE. [Suspect]
     Active Substance: BUPIVACAINE
     Dosage: 0.020 MG, \DAY
     Route: 037
     Dates: start: 20170824
  3. MORPHINE [Suspect]
     Active Substance: MORPHINE
     Dosage: 0.122 MG, \DAY
     Route: 037
     Dates: start: 20170824
  4. BACLOFEN. [Suspect]
     Active Substance: BACLOFEN
     Dosage: 6.1 ?G, \DAY
     Route: 037
     Dates: start: 20170824
  5. BUPIVACAINE. [Suspect]
     Active Substance: BUPIVACAINE
     Dosage: 2.4257 MG, \DAY
     Route: 037
     Dates: end: 20170824
  6. MORPHINE [Suspect]
     Active Substance: MORPHINE
     Dosage: 14.701 MG, \DAY
     Route: 037
     Dates: end: 20170824

REACTIONS (2)
  - Medication error [Unknown]
  - Unresponsive to stimuli [Recovered/Resolved]

NARRATIVE: CASE EVENT DATE: 20170824
